FAERS Safety Report 15398112 (Version 1)
Quarter: 2018Q4

REPORT INFORMATION
  Report Type: Spontaneous
  Country: US (occurrence: US)
  Receive Date: 20180918
  Receipt Date: 20180918
  Transmission Date: 20190204
  Serious: Yes (Hospitalization, Other)
  Sender: FDA-Public Use
  Company Number: US-SA-2018SA256591

PATIENT
  Sex: Male
  Weight: 131.5 kg

DRUGS (10)
  1. ARAVA [Suspect]
     Active Substance: LEFLUNOMIDE
     Indication: RHEUMATOID ARTHRITIS
  2. LASIX [Suspect]
     Active Substance: FUROSEMIDE
  3. FLUTICASONE. [Suspect]
     Active Substance: FLUTICASONE
  4. IBUPROFEN. [Suspect]
     Active Substance: IBUPROFEN
  5. ENBREL [Suspect]
     Active Substance: ETANERCEPT
     Indication: RHEUMATOID ARTHRITIS
     Dosage: UNK
     Dates: start: 20080811, end: 2009
  6. PENICILLIN G ^HOECHST^ [Suspect]
     Active Substance: PENICILLIN G SODIUM
  7. GABAPENTIN. [Suspect]
     Active Substance: GABAPENTIN
  8. XELJANZ [Suspect]
     Active Substance: TOFACITINIB CITRATE
     Indication: RHEUMATOID ARTHRITIS
     Dosage: BID
     Route: 048
  9. METHOTREXATE. [Suspect]
     Active Substance: METHOTREXATE
     Indication: RHEUMATOID ARTHRITIS
     Dosage: UNK
     Route: 048
     Dates: start: 20080122, end: 20140206
  10. SIMPONI [Suspect]
     Active Substance: GOLIMUMAB
     Indication: RHEUMATOID ARTHRITIS
     Dosage: UNK
     Dates: start: 2015

REACTIONS (10)
  - Weight increased [Not Recovered/Not Resolved]
  - Pruritus [Unknown]
  - Drug hypersensitivity [Unknown]
  - Spinal operation [Unknown]
  - Surgery [Unknown]
  - Alopecia [Unknown]
  - Foot operation [Unknown]
  - Impaired healing [Not Recovered/Not Resolved]
  - Pain [Not Recovered/Not Resolved]
  - Adverse event [Unknown]
